FAERS Safety Report 19363710 (Version 1)
Quarter: 2021Q2

REPORT INFORMATION
  Report Type: Spontaneous
  Country: CN (occurrence: CN)
  Receive Date: 20210603
  Receipt Date: 20210603
  Transmission Date: 20210717
  Serious: Yes (Hospitalization, Other)
  Sender: FDA-Public Use
  Company Number: CN-009507513-2106CHN000379

PATIENT
  Age: 53 Year
  Sex: Male
  Weight: 68 kg

DRUGS (3)
  1. KEYTRUDA [Suspect]
     Active Substance: PEMBROLIZUMAB
     Indication: LUNG NEOPLASM MALIGNANT
     Dosage: 200 MILLIGRAM, 1 TIME IN 1 DAY
     Route: 041
     Dates: start: 20210511, end: 20210511
  2. PEMETREXED DISODIUM [Suspect]
     Active Substance: PEMETREXED DISODIUM
     Indication: LUNG NEOPLASM MALIGNANT
     Dosage: 0.85 GRAM, 1 TIME IN 1 DAY
     Route: 041
     Dates: start: 20210501, end: 20210501
  3. CISPLATIN. [Suspect]
     Active Substance: CISPLATIN
     Dosage: 65 MILLIGRAM, 1 TIME IN 1 DAY
     Route: 041
     Dates: start: 20210501, end: 20210502

REACTIONS (1)
  - Myelosuppression [Recovering/Resolving]

NARRATIVE: CASE EVENT DATE: 20210514
